FAERS Safety Report 20869231 (Version 1)
Quarter: 2022Q2

REPORT INFORMATION
  Report Type: Spontaneous
  Country: SE (occurrence: SE)
  Receive Date: 20220524
  Receipt Date: 20220524
  Transmission Date: 20220721
  Serious: Yes (Other)
  Sender: FDA-Public Use
  Company Number: SE-SANOFI-01108622

PATIENT

DRUGS (3)
  1. PRALUENT [Suspect]
     Active Substance: ALIROCUMAB
     Indication: Product used for unknown indication
     Dosage: UNK
     Dates: start: 20220317
  2. EZETIMIBE [Suspect]
     Active Substance: EZETIMIBE
     Indication: Product used for unknown indication
     Dosage: UNK
     Dates: start: 20220317
  3. ROSUVASTATIN [Suspect]
     Active Substance: ROSUVASTATIN
     Indication: Product used for unknown indication
     Dosage: UNK
     Dates: start: 20220317

REACTIONS (9)
  - Lymphoma [Unknown]
  - Sarcoidosis [Unknown]
  - Erythema nodosum [Unknown]
  - Fatigue [Unknown]
  - Pyrexia [Unknown]
  - Myalgia [Unknown]
  - Pain in extremity [Recovering/Resolving]
  - Condition aggravated [Recovering/Resolving]
  - Cough [Unknown]
